FAERS Safety Report 8803705 (Version 1)
Quarter: 2012Q4

REPORT INFORMATION
  Report Type: Report from Study
  Country: CA (occurrence: CA)
  Receive Date: 20120924
  Receipt Date: 20120924
  Transmission Date: 20130627
  Serious: Yes (Other)
  Sender: FDA-Public Use
  Company Number: CA-JNJFOC-20120906538

PATIENT
  Sex: Male
  Weight: 123 kg

DRUGS (3)
  1. REMICADE [Suspect]
     Indication: CROHN^S DISEASE
     Dosage: 4th infusion
     Route: 042
     Dates: start: 20120912
  2. REMICADE [Suspect]
     Indication: CROHN^S DISEASE
     Route: 042
     Dates: start: 201205
  3. IMURAN [Suspect]
     Indication: PRODUCT USED FOR UNKNOWN INDICATION
     Dosage: 100 mg in the morning and 50mg in the noon
     Route: 048

REACTIONS (4)
  - Erythema [Not Recovered/Not Resolved]
  - Pain in extremity [Not Recovered/Not Resolved]
  - Feeling hot [Not Recovered/Not Resolved]
  - Oedema peripheral [Not Recovered/Not Resolved]
